FAERS Safety Report 24017110 (Version 6)
Quarter: 2024Q3

REPORT INFORMATION
  Report Type: Spontaneous
  Country: JP (occurrence: JP)
  Receive Date: 20240626
  Receipt Date: 20240923
  Transmission Date: 20241016
  Serious: Yes (Other)
  Sender: ASTELLAS
  Company Number: JP-ASTELLAS-2024JP004389

PATIENT
  Age: 8 Decade
  Sex: Female

DRUGS (8)
  1. XOSPATA [Suspect]
     Active Substance: GILTERITINIB
     Indication: Acute myeloid leukaemia recurrent
     Route: 048
     Dates: start: 20240604, end: 20240626
  2. XOSPATA [Suspect]
     Active Substance: GILTERITINIB
     Indication: Acute myeloid leukaemia refractory
     Route: 048
     Dates: start: 20240627, end: 20240717
  3. XOSPATA [Suspect]
     Active Substance: GILTERITINIB
     Route: 048
     Dates: start: 20240718, end: 20240729
  4. NOXAFIL [Concomitant]
     Active Substance: POSACONAZOLE
     Indication: Antifungal prophylaxis
     Dosage: UNK UNK, UNKNOWN FREQ.
     Route: 048
  5. NOXAFIL [Concomitant]
     Active Substance: POSACONAZOLE
     Dosage: UNK UNK, UNKNOWN FREQ., DOSE INCREASE
     Route: 048
  6. VENCLEXTA [Concomitant]
     Active Substance: VENETOCLAX
     Indication: Acute myeloid leukaemia (in remission)
     Dosage: UNK UNK, UNKNOWN FREQ.
     Route: 065
  7. AZACITIDINE [Concomitant]
     Active Substance: AZACITIDINE
     Indication: Acute myeloid leukaemia (in remission)
     Dosage: UNK UNK, UNKNOWN FREQ.
     Route: 065
  8. AZACITIDINE [Concomitant]
     Active Substance: AZACITIDINE
     Dosage: UNK UNK, UNKNOWN FREQ.
     Route: 065

REACTIONS (4)
  - Neutropenia [Unknown]
  - Renal impairment [Recovered/Resolved]
  - Blood lactate dehydrogenase increased [Recovered/Resolved]
  - Drug ineffective [Unknown]

NARRATIVE: CASE EVENT DATE: 20240624
